FAERS Safety Report 10253187 (Version 2)
Quarter: 2015Q1

REPORT INFORMATION
  Report Type: Spontaneous
  Country: FR (occurrence: FR)
  Receive Date: 20140623
  Receipt Date: 20150220
  Transmission Date: 20150720
  Serious: Yes (Hospitalization)
  Sender: FDA-Public Use
  Company Number: FR-ALLERGAN-1413333US

PATIENT
  Age: 43 Year
  Sex: Female
  Weight: 50 kg

DRUGS (5)
  1. BOTOX [Suspect]
     Active Substance: ONABOTULINUMTOXINA
     Indication: NEUROGENIC BLADDER
     Dosage: 200 UNITS, SINGLE
     Dates: start: 20140611, end: 20140611
  2. BOTOX [Suspect]
     Active Substance: ONABOTULINUMTOXINA
     Indication: HYPERTONIC BLADDER
     Dosage: UNKNOWN
     Route: 030
  3. RIVOTRIL [Concomitant]
     Active Substance: CLONAZEPAM
     Dosage: 15 GTT, QHS
  4. IBUPROFEN. [Concomitant]
     Active Substance: IBUPROFEN
     Dosage: UNKNOWN
  5. CELLCEPT [Concomitant]
     Active Substance: MYCOPHENOLATE MOFETIL\MYCOPHENOLATE MOFETIL HYDROCHLORIDE
     Dosage: 500 MG, BID

REACTIONS (9)
  - Eye pain [Recovered/Resolved]
  - Cystitis [Unknown]
  - Headache [Recovered/Resolved]
  - Bladder pain [Recovered/Resolved]
  - Multiple sclerosis relapse [Recovered/Resolved]
  - Conversion disorder [Recovered/Resolved]
  - Diplopia [Recovered/Resolved]
  - Asthenia [Recovered/Resolved]
  - Visual impairment [Recovered/Resolved]

NARRATIVE: CASE EVENT DATE: 20140611
